FAERS Safety Report 9462536 (Version 1)
Quarter: 2013Q3

REPORT INFORMATION
  Report Type: Spontaneous
  Country: US (occurrence: None)
  Receive Date: 20130815
  Receipt Date: 20130815
  Transmission Date: 20140515
  Serious: Yes (Life-Threatening)
  Sender: FDA-Public Use
  Company Number: None

PATIENT
  Age: 65 Year
  Sex: Male

DRUGS (1)
  1. ADENOSINE [Suspect]
     Dosage: 66.6 MG  ONCE  IV
     Route: 042
     Dates: start: 20130730, end: 20130730

REACTIONS (3)
  - Cough [None]
  - Wheezing [None]
  - Bronchospasm [None]
